FAERS Safety Report 16571216 (Version 2)
Quarter: 2019Q3

REPORT INFORMATION
  Report Type: Spontaneous
  Country: US (occurrence: US)
  Receive Date: 20190715
  Receipt Date: 20190723
  Transmission Date: 20191004
  Serious: Yes (Hospitalization, Other)
  Sender: FDA-Public Use
  Company Number: US-PFIZER INC-2019299196

PATIENT
  Age: 79 Year
  Sex: Female
  Weight: 66.22 kg

DRUGS (2)
  1. VFEND [Suspect]
     Active Substance: VORICONAZOLE
     Indication: ACUTE MYELOID LEUKAEMIA
     Dosage: 200 MG, 2X/DAY
     Route: 048
     Dates: start: 201903
  2. VFEND [Suspect]
     Active Substance: VORICONAZOLE
     Indication: INFECTION

REACTIONS (8)
  - Streptococcal infection [Not Recovered/Not Resolved]
  - Atrial fibrillation [Unknown]
  - Abscess [Unknown]
  - Osteomyelitis [Unknown]
  - Back pain [Unknown]
  - Deep vein thrombosis [Unknown]
  - Sepsis [Not Recovered/Not Resolved]
  - Inflammation [Unknown]
